FAERS Safety Report 9193366 (Version 2)
Quarter: 2013Q2

REPORT INFORMATION
  Report Type: Spontaneous
  Country: PL (occurrence: PL)
  Receive Date: 20130327
  Receipt Date: 20130418
  Transmission Date: 20140414
  Serious: Yes (Other)
  Sender: FDA-Public Use
  Company Number: PL-PFIZER INC-2013097368

PATIENT
  Sex: Female
  Weight: 80 kg

DRUGS (1)
  1. CELEBREX [Suspect]
     Indication: ARTHRITIS
     Dosage: 200 MG, 1X/DAY AT NIGHT
     Route: 048
     Dates: start: 20130315

REACTIONS (2)
  - Eyelid oedema [Recovered/Resolved]
  - Mood altered [Recovered/Resolved]
